FAERS Safety Report 7045002-4 (Version None)
Quarter: 2010Q4

REPORT INFORMATION
  Report Type: 
  Country: None (occurrence: None)
  Receive Date: 20101014
  Receipt Date: 20101007
  Transmission Date: 20110411
  Serious: Yes (Other)
  Sender: FDA-Public Use
  Company Number: US-BAYER-201036155NA

PATIENT
  Age: 60 Year
  Sex: Female
  Weight: 117 kg

DRUGS (9)
  1. SORAFENIB [Suspect]
     Indication: BREAST CANCER METASTATIC
     Dosage: TOTAL DAILY DOSE: 400 MG  UNIT DOSE: 200 MG
     Route: 048
     Dates: start: 20100818, end: 20101006
  2. VINORELBINE [Suspect]
     Indication: BREAST CANCER METASTATIC
     Dosage: UNIT DOSE: 20 MG/M2
     Dates: start: 20100818, end: 20100929
  3. CARDIA [Concomitant]
     Dosage: STARTING PRIOR TO START OF STUDY
  4. CYMBALTA [Concomitant]
     Dosage: STARTING PRIOR TO START OF STUDY
  5. DIOVAN [Concomitant]
     Dosage: STARTING PRIOR TO START OF STUDY
  6. HYDROCHLOROTHIAZIDE [Concomitant]
     Dosage: STARTING PRIOR TO START OF STUDY
  7. POTASSIUM [Concomitant]
     Dosage: STARTING PRIOR TO START OF STUDY
  8. TYLENOL [Concomitant]
     Dosage: STARTING PRIOR TO START OF STUDY
  9. XANAX [Concomitant]
     Dosage: STARTING PRIOR TO START OF STUDY

REACTIONS (1)
  - PULMONARY EMBOLISM [None]
